FAERS Safety Report 13226836 (Version 4)
Quarter: 2017Q2

REPORT INFORMATION
  Report Type: Spontaneous
  Country: CA (occurrence: CA)
  Receive Date: 20170213
  Receipt Date: 20170426
  Transmission Date: 20170830
  Serious: Yes (Other)
  Sender: FDA-Public Use
  Company Number: PHHY2017CA020306

PATIENT
  Sex: Female

DRUGS (1)
  1. CICLOSPORIN [Suspect]
     Active Substance: CYCLOSPORINE
     Indication: BONE MARROW TRANSPLANT
     Route: 065

REACTIONS (7)
  - Nocardiosis [Unknown]
  - Acute graft versus host disease in intestine [Unknown]
  - Pericarditis [Unknown]
  - Acute graft versus host disease in liver [Unknown]
  - Iron overload [Unknown]
  - Renal impairment [Unknown]
  - Maternal exposure during pregnancy [Unknown]
